FAERS Safety Report 5253584-8 (Version None)
Quarter: 2007Q1

REPORT INFORMATION
  Report Type: 
  Country: None (occurrence: None)
  Receive Date: 20070301
  Receipt Date: 20070221
  Transmission Date: 20070707
  Serious: Yes (Other)
  Sender: FDA-Public Use
  Company Number: JP-GILEAD-2006-0010892

PATIENT
  Sex: Male

DRUGS (2)
  1. HEPSERA [Suspect]
     Indication: HEPATITIS B
     Route: 048
     Dates: start: 20051021
  2. ZEFIX [Suspect]
     Indication: HEPATITIS B
     Route: 048
     Dates: start: 20030912

REACTIONS (2)
  - BLOOD AMYLASE INCREASED [None]
  - MACROAMYLASAEMIA [None]
